FAERS Safety Report 15109968 (Version 1)
Quarter: 2018Q3

REPORT INFORMATION
  Report Type: Spontaneous
  Country: DE (occurrence: DE)
  Receive Date: 20180705
  Receipt Date: 20180705
  Transmission Date: 20181010
  Serious: Yes (Hospitalization)
  Sender: FDA-Public Use
  Company Number: PHHY2018DE035326

PATIENT
  Age: 58 Year
  Sex: Male
  Weight: 70.9 kg

DRUGS (13)
  1. METAMIZOLE [Concomitant]
     Active Substance: METAMIZOLE
     Indication: PRODUCT USED FOR UNKNOWN INDICATION
     Dosage: 500 MG, QID (500 MG, 2?2?2?2, TABLETTEN)
     Route: 048
  2. HYDROMORPHONE [Concomitant]
     Active Substance: HYDROMORPHONE
     Indication: PRODUCT USED FOR UNKNOWN INDICATION
     Dosage: 16 MG, TID (16 MG, 1?1?1?0, TABLETTEN)
     Route: 048
  3. VITAMIN B12 [Concomitant]
     Active Substance: CYANOCOBALAMIN
     Indication: PRODUCT USED FOR UNKNOWN INDICATION
     Dosage: 1000 UG, UNK (1000 ?G, NACH SCHEMA, INJEKTIONS?/INFUSIONSL?SUNG)
     Route: 042
  4. PEMETREXED. [Suspect]
     Active Substance: PEMETREXED
     Indication: PRODUCT USED FOR UNKNOWN INDICATION
     Dosage: UNK (NACH SCHEMA, INJEKTIONS?/INFUSIONSLOSUNG)
     Route: 042
  5. ETORICOXIB. [Concomitant]
     Active Substance: ETORICOXIB
     Indication: PRODUCT USED FOR UNKNOWN INDICATION
     Dosage: 90 MG, QD (90 MG, 0?0?1?0, TABLETTEN)
     Route: 048
  6. PANTOPRAZOL [Concomitant]
     Active Substance: PANTOPRAZOLE SODIUM
     Indication: PRODUCT USED FOR UNKNOWN INDICATION
     Dosage: 40 MG, QD (40 MG, 1?0?0?0, TABLETTEN)
     Route: 048
  7. PREGABALIN. [Concomitant]
     Active Substance: PREGABALIN
     Indication: PRODUCT USED FOR UNKNOWN INDICATION
     Dosage: 75 MG, BID (75 MG, 1?0?1?0, TABLETTEN)
     Route: 048
  8. CARBOPLATIN. [Suspect]
     Active Substance: CARBOPLATIN
     Indication: PRODUCT USED FOR UNKNOWN INDICATION
     Dosage: UNK (NACH SCHEMA)
     Route: 065
  9. BROMAZEPAM [Concomitant]
     Active Substance: BROMAZEPAM
     Indication: PRODUCT USED FOR UNKNOWN INDICATION
     Dosage: 6 MG, BID (6 MG, 0?0.25?0.5?0, TABLETTEN)
     Route: 048
  10. HYDROMORPHONE [Concomitant]
     Active Substance: HYDROMORPHONE
     Dosage: UNK (2.6 MG, BEI BEDARF, TABLETTEN)
     Route: 048
  11. ZOLEDRONIC ACID [Concomitant]
     Active Substance: ZOLEDRONIC ACID
     Indication: PRODUCT USED FOR UNKNOWN INDICATION
     Dosage: 4 MG, UNK (4 MG, NACH SCHEMA, INJEKTIONS?/INFUSIONSL?SUNG)
     Route: 042
  12. FOLSAEURE [Concomitant]
     Active Substance: FOLIC ACID
     Indication: PRODUCT USED FOR UNKNOWN INDICATION
     Dosage: UNK (4 MG, NACH SCHEMA)
     Route: 065
  13. MACROGOL [Concomitant]
     Active Substance: POLYETHYLENE GLYCOLS
     Indication: PRODUCT USED FOR UNKNOWN INDICATION
     Dosage: UNK UNK, QD (1?0?0?0, BEUTEL)
     Route: 048

REACTIONS (11)
  - Systemic infection [Unknown]
  - Systemic inflammatory response syndrome [Unknown]
  - Tachycardia [Unknown]
  - Dehydration [Unknown]
  - Pyrexia [Unknown]
  - Vomiting [Unknown]
  - Hypotension [Unknown]
  - General physical health deterioration [Unknown]
  - Pain [Unknown]
  - Cytopenia [Unknown]
  - Diarrhoea [Unknown]
